FAERS Safety Report 21328360 (Version 1)
Quarter: 2022Q3

REPORT INFORMATION
  Report Type: Report from Study
  Country: CA (occurrence: CA)
  Receive Date: 20220913
  Receipt Date: 20220913
  Transmission Date: 20221026
  Serious: Yes (Other)
  Sender: FDA-Public Use
  Company Number: CA-ABBVIE-22K-028-4522887-00

PATIENT
  Sex: Female

DRUGS (1)
  1. HUMIRA [Suspect]
     Active Substance: ADALIMUMAB
     Indication: Product used for unknown indication
     Route: 058
     Dates: start: 20161110, end: 20220809

REACTIONS (9)
  - Animal bite [Unknown]
  - Sepsis [Unknown]
  - Loose tooth [Not Recovered/Not Resolved]
  - Dizziness [Recovered/Resolved]
  - Swelling face [Not Recovered/Not Resolved]
  - Tooth fracture [Not Recovered/Not Resolved]
  - Glucose tolerance impaired [Unknown]
  - Tooth infection [Not Recovered/Not Resolved]
  - Gingivitis [Unknown]

NARRATIVE: CASE EVENT DATE: 20210101
